FAERS Safety Report 7187877-4 (Version None)
Quarter: 2010Q4

REPORT INFORMATION
  Report Type: 
  Country: None (occurrence: None)
  Receive Date: 20101222
  Receipt Date: 20100712
  Transmission Date: 20110411
  Serious: No
  Sender: FDA-Public Use
  Company Number: US-AMGEN-KDL423932

PATIENT

DRUGS (16)
  1. ENBREL [Suspect]
     Indication: RHEUMATOID ARTHRITIS
     Dosage: 50 MG, QWK
     Route: 058
     Dates: start: 20080107
  2. AMLODIPINE BESYLATE [Concomitant]
     Dosage: 5 MG, QD
     Dates: start: 20080301
  3. CITRACAL PLUS D [Concomitant]
     Dosage: 200 IU, BID
     Dates: start: 20081006
  4. COLECALCIFEROL [Concomitant]
     Dosage: 1000 IU, BID
     Route: 048
     Dates: start: 20100215
  5. ALVESCO [Concomitant]
     Dosage: 80 A?G, BID
     Dates: start: 20090914
  6. FLUOXETINE HYDROCHLORIDE [Concomitant]
     Dosage: 10 MG, QD
  7. POTASSIUM CHLORIDE [Concomitant]
     Dosage: 20 MEQ, BID
     Dates: start: 20080107
  8. RALOXIFEN HCL [Concomitant]
     Dosage: 60 MG, QD
  9. TRAZODONE HYDROCHLORIDE [Concomitant]
     Dosage: 50 MG, QD
  10. TRIAMTERENE AND HYDROCHLOROTHIAZIDE [Concomitant]
     Dosage: 37.5 MG, QD
     Route: 048
  11. ZAFIRLUKAST [Concomitant]
     Dosage: 10 MG, BID
     Route: 048
     Dates: start: 20080107
  12. CYCLOBENZAPRINE HCL [Concomitant]
     Dosage: 10 MG, PRN
     Dates: start: 20090914
  13. FAMOTIDINE [Concomitant]
     Dosage: 20 MG, PRN
     Dates: start: 20080107
  14. ACETAMINOPHEN AND HYDROCODONE BITARTRATE [Concomitant]
     Dosage: 500 MG, PRN
     Route: 048
     Dates: start: 20090914
  15. MAGNESIUM HYDROXIDE [Concomitant]
     Dosage: 8 %, UNK
     Route: 048
     Dates: start: 20080107
  16. RANITIDINE HYDROCHLORIDE [Concomitant]
     Dosage: 150 MG, PRN
     Dates: start: 20080107

REACTIONS (6)
  - ANTI-CYCLIC CITRULLINATED PEPTIDE ANTIBODY POSITIVE [None]
  - C-REACTIVE PROTEIN ABNORMAL [None]
  - CHILLS [None]
  - INJECTION SITE ERYTHEMA [None]
  - INJECTION SITE WARMTH [None]
  - RHEUMATOID FACTOR POSITIVE [None]
